FAERS Safety Report 11159618 (Version 1)
Quarter: 2015Q2

REPORT INFORMATION
  Report Type: Report from Study
  Country: US (occurrence: US)
  Receive Date: 20150603
  Receipt Date: 20150603
  Transmission Date: 20150821
  Serious: No
  Sender: FDA-Public Use
  Company Number: US-ABBVIE-15P-163-1359839-00

PATIENT
  Age: 53 Year
  Sex: Male

DRUGS (2)
  1. MARINOL [Suspect]
     Active Substance: DRONABINOL
     Indication: OFF LABEL USE
  2. MARINOL [Suspect]
     Active Substance: DRONABINOL
     Indication: PAIN
     Dosage: TAKEN FOR YEARS
     Route: 048
     Dates: end: 201502

REACTIONS (2)
  - Off label use [Unknown]
  - Drug ineffective for unapproved indication [Not Recovered/Not Resolved]

NARRATIVE: CASE EVENT DATE: 201502
